FAERS Safety Report 12901643 (Version 1)
Quarter: 2016Q4

REPORT INFORMATION
  Report Type: Report from Study
  Country: KE (occurrence: KE)
  Receive Date: 20161102
  Receipt Date: 20161102
  Transmission Date: 20170207
  Serious: Yes (Other)
  Sender: FDA-Public Use
  Company Number: KE-CIPLA LTD.-2016KE20409

PATIENT

DRUGS (5)
  1. NEVIRAPINE. [Suspect]
     Active Substance: NEVIRAPINE
     Dosage: UNK, UPTO 6 MONTHS POST PARTUM
     Route: 063
  2. LAMIVUDINE/ZIDOVUDINE [Suspect]
     Active Substance: LAMIVUDINE\ZIDOVUDINE
     Dosage: UNK, UPTO 6 MONTHS POST PARTUM
     Route: 063
  3. NEVIRAPINE. [Suspect]
     Active Substance: NEVIRAPINE
     Indication: PROPHYLAXIS AGAINST HIV INFECTION
     Dosage: UNK, FROM 34 GESTATIONAL WEEKS
     Route: 064
  4. LAMIVUDINE/ZIDOVUDINE [Suspect]
     Active Substance: LAMIVUDINE\ZIDOVUDINE
     Dosage: UNK, FROM 34 GESTATIONAL WEEKS
     Route: 064
  5. NEVIRAPINE. [Suspect]
     Active Substance: NEVIRAPINE
     Dosage: 2 MG/KG, SINGLE
     Route: 065

REACTIONS (4)
  - HIV infection [Unknown]
  - Exposure during breast feeding [Unknown]
  - Drug resistance [Unknown]
  - Foetal exposure during pregnancy [Unknown]
